FAERS Safety Report 11431862 (Version 2)
Quarter: 2016Q1

REPORT INFORMATION
  Report Type: Report from Study
  Country: BR (occurrence: BR)
  Receive Date: 20150828
  Receipt Date: 20160329
  Transmission Date: 20160525
  Serious: Yes (Death, Hospitalization, Other)
  Sender: FDA-Public Use
  Company Number: PHHY2015BR104177

PATIENT
  Age: 12 Year
  Sex: Male
  Weight: 26 kg

DRUGS (2)
  1. EXJADE [Suspect]
     Active Substance: DEFERASIROX
     Dosage: 40 MG/KG, QD (2 DF OF 500 MG)
     Route: 065
  2. EXJADE [Suspect]
     Active Substance: DEFERASIROX
     Indication: SICKLE CELL ANAEMIA
     Dosage: 40 MG/KG, QD (2 DF OF 500 MG)
     Route: 048
     Dates: start: 2012

REACTIONS (7)
  - Cardiac arrest [Fatal]
  - Acute respiratory failure [Fatal]
  - Hypertension [Not Recovered/Not Resolved]
  - Incorrect route of drug administration [Unknown]
  - Pulmonary oedema [Unknown]
  - General physical health deterioration [Unknown]
  - Peripheral swelling [Recovering/Resolving]

NARRATIVE: CASE EVENT DATE: 201603
